FAERS Safety Report 15003478 (Version 1)
Quarter: 2018Q2

REPORT INFORMATION
  Report Type: Spontaneous
  Country: GB (occurrence: GB)
  Receive Date: 20180613
  Receipt Date: 20180613
  Transmission Date: 20180711
  Serious: Yes (Other)
  Sender: FDA-Public Use
  Company Number: GB-TEVA-2017-GB-836228

PATIENT
  Age: 69 Year
  Sex: Female
  Weight: 75 kg

DRUGS (14)
  1. CAPSAICIN. [Concomitant]
     Active Substance: CAPSAICIN
     Indication: ILL-DEFINED DISORDER
     Dosage: APPLY
     Dates: start: 20170603
  2. SPIRIVA [Concomitant]
     Active Substance: TIOTROPIUM BROMIDE MONOHYDRATE
     Indication: ILL-DEFINED DISORDER
     Route: 055
     Dates: start: 20170112
  3. CARBOCISTEINE [Concomitant]
     Active Substance: CARBOCYSTEINE
     Indication: ILL-DEFINED DISORDER
     Dates: start: 20170222
  4. RANITIDINE HYDROCHLORIDE. [Concomitant]
     Active Substance: RANITIDINE HYDROCHLORIDE
     Indication: ILL-DEFINED DISORDER
     Dates: start: 20161229
  5. SALBUTAMOL [Concomitant]
     Active Substance: ALBUTEROL
     Indication: ILL-DEFINED DISORDER
     Route: 055
     Dates: start: 20130828
  6. BRICANYL [Concomitant]
     Active Substance: TERBUTALINE SULFATE
     Route: 055
     Dates: start: 20170309, end: 20171004
  7. PREDNISOLONE. [Concomitant]
     Active Substance: PREDNISOLONE
     Dates: start: 20171013, end: 20171020
  8. GAVISCON ADVANCE [Concomitant]
     Active Substance: POTASSIUM BICARBONATE\SODIUM ALGINATE
     Indication: ILL-DEFINED DISORDER
     Dosage: 5ML - 10ML 4 TIMES A DAY
     Dates: start: 20161229
  9. ATORVASTATIN [Concomitant]
     Active Substance: ATORVASTATIN
     Dosage: 1 DOSAGE FORMS DAILY; AT NIGHT
     Dates: start: 20171013, end: 20171110
  10. RELVAR ELLIPTA [Concomitant]
     Active Substance: FLUTICASONE FUROATE\VILANTEROL TRIFENATATE
     Indication: ILL-DEFINED DISORDER
     Dosage: 1 DOSAGE FORMS DAILY;
     Route: 055
     Dates: start: 20161229
  11. E45 ITCH RELIEF [Concomitant]
     Indication: ILL-DEFINED DISORDER
     Dates: start: 20160527
  12. CLARITHROMYCIN. [Concomitant]
     Active Substance: CLARITHROMYCIN
     Dates: start: 20171013, end: 20171020
  13. AMOXICILLIN. [Concomitant]
     Active Substance: AMOXICILLIN
     Dosage: 3 DOSAGE FORMS DAILY;
     Dates: start: 20171004, end: 20171009
  14. NITROFURANTOIN. [Suspect]
     Active Substance: NITROFURANTOIN
     Indication: GENITOURINARY TRACT INFECTION
     Route: 048
     Dates: start: 20171115

REACTIONS (2)
  - Rash [Recovered/Resolved]
  - Rash macular [Recovered/Resolved]

NARRATIVE: CASE EVENT DATE: 20171101
